FAERS Safety Report 9491727 (Version 1)
Quarter: 2013Q3

REPORT INFORMATION
  Report Type: Spontaneous
  Country: US (occurrence: US)
  Receive Date: 20130830
  Receipt Date: 20130830
  Transmission Date: 20140515
  Serious: No
  Sender: FDA-Public Use
  Company Number: US-TEVA-429136USA

PATIENT
  Age: 37 Year
  Sex: Female
  Weight: 127.12 kg

DRUGS (10)
  1. PARAGARD 380A [Suspect]
     Indication: CONTRACEPTION
     Route: 015
     Dates: start: 20130621, end: 20130826
  2. GLIPIZIDE [Concomitant]
     Dosage: ONCE
     Route: 048
  3. HYDROCHLOROTHIAZIDE [Concomitant]
     Dosage: ONCE
     Route: 048
  4. LOSARTAN [Concomitant]
     Route: 048
  5. AMLODIPINE [Concomitant]
     Route: 048
  6. METFORMIN [Concomitant]
     Dosage: 1000 MILLIGRAM DAILY;
     Route: 048
  7. FLUOXETINE HYDROCHLORIDE [Concomitant]
  8. METHYLPHENIDATE HYDROCHLORIDE [Concomitant]
     Dosage: 60 MILLIGRAM DAILY;
     Route: 048
  9. SALBUTAMOL [Concomitant]
     Dosage: 3 PUFFS PRN
     Route: 048
  10. BUPROPION [Concomitant]
     Dosage: 150 MILLIGRAM DAILY;
     Route: 048

REACTIONS (1)
  - Device expulsion [Recovered/Resolved]
